FAERS Safety Report 7369079-1 (Version None)
Quarter: 2011Q1

REPORT INFORMATION
  Report Type: 
  Country: None (occurrence: None)
  Receive Date: 20110314
  Receipt Date: 20110308
  Transmission Date: 20110831
  Serious: Yes (Hospitalization, Disabling, Other)
  Sender: FDA-Public Use
  Company Number: 2009SP028658

PATIENT
  Age: 22 Year
  Sex: Female
  Weight: 65.7716 kg

DRUGS (3)
  1. ACETAMINOPHEN [Concomitant]
  2. NUVARING [Suspect]
     Indication: CONTRACEPTION
     Dates: start: 20021201, end: 20071101
  3. MULTI-VITAMIN [Concomitant]

REACTIONS (20)
  - POST-TRAUMATIC STRESS DISORDER [None]
  - ADJUSTMENT DISORDER [None]
  - IMPAIRED WORK ABILITY [None]
  - HEADACHE [None]
  - HEAD INJURY [None]
  - MOUTH HAEMORRHAGE [None]
  - PNEUMONIA [None]
  - VISUAL IMPAIRMENT [None]
  - VICTIM OF SEXUAL ABUSE [None]
  - CAROTID ARTERY OCCLUSION [None]
  - CONVULSION [None]
  - SUICIDAL IDEATION [None]
  - RHABDOMYOLYSIS [None]
  - CEREBROVASCULAR ACCIDENT [None]
  - UNRESPONSIVE TO STIMULI [None]
  - RESPIRATORY FAILURE [None]
  - HYPERTENSION [None]
  - FALL [None]
  - COMA [None]
  - BRAIN OEDEMA [None]
